FAERS Safety Report 6337481-2 (Version None)
Quarter: 2009Q3

REPORT INFORMATION
  Report Type: 
  Country: None (occurrence: None)
  Receive Date: 20090902
  Receipt Date: 20090825
  Transmission Date: 20100115
  Serious: Yes (Other)
  Sender: FDA-Public Use
  Company Number: GB-TEVA-207072ISR

PATIENT
  Sex: Female

DRUGS (1)
  1. METFORMIN HCL [Suspect]

REACTIONS (1)
  - MYOCARDIAL INFARCTION [None]
